FAERS Safety Report 6276414-4 (Version None)
Quarter: 2009Q3

REPORT INFORMATION
  Report Type: 
  Country: None (occurrence: None)
  Receive Date: 20090717
  Receipt Date: 20090717
  Transmission Date: 20100115
  Serious: Yes (Other)
  Sender: FDA-Public Use
  Company Number: None

PATIENT
  Age: 78 Year
  Sex: Male
  Weight: 85.2762 kg

DRUGS (1)
  1. RECLAST STANDARD DOSE FOR PT. SIZE [Suspect]
     Indication: OSTEOPOROSIS
     Dosage: 5 MG ONCE INTRAVENOUS INFUSION
     Route: 042
     Dates: start: 20090309

REACTIONS (1)
  - PAROPHTHALMIA [None]
